FAERS Safety Report 5323594-0 (Version None)
Quarter: 2007Q2

REPORT INFORMATION
  Report Type: 
  Country: None (occurrence: None)
  Receive Date: 20070514
  Receipt Date: 20070502
  Transmission Date: 20071010
  Serious: Yes (Hospitalization)
  Sender: FDA-Public Use
  Company Number: IE-AMGEN-US217509

PATIENT
  Sex: Female
  Weight: 47.6 kg

DRUGS (4)
  1. ENBREL [Suspect]
     Indication: DRUG USE FOR UNKNOWN INDICATION
     Route: 058
     Dates: start: 20061219, end: 20070103
  2. ENBREL [Suspect]
     Route: 058
     Dates: start: 20070124, end: 20070221
  3. DIFILIN [Concomitant]
     Dosage: PRN
  4. HYDROCORTISONE [Concomitant]
     Dosage: 10 MG AND 5 MG EVERY OTHER DAY
     Dates: start: 20060901

REACTIONS (2)
  - ENCEPHALITIS [None]
  - MENINGITIS [None]
